FAERS Safety Report 7772690-7 (Version None)
Quarter: 2011Q3

REPORT INFORMATION
  Report Type: 
  Country: None (occurrence: None)
  Receive Date: 20110922
  Receipt Date: 20100830
  Transmission Date: 20111222
  Serious: No
  Sender: FDA-Public Use
  Company Number: US-ASTRAZENECA-2007UW27684

PATIENT
  Age: 17846 Day
  Sex: Female
  Weight: 102.5 kg

DRUGS (8)
  1. SEROQUEL [Suspect]
     Indication: BIPOLAR DISORDER
     Dosage: 100 TO 300 MG
     Route: 048
     Dates: start: 20050531
  2. SEROQUEL [Suspect]
     Indication: DEPRESSION
     Dosage: 100 TO 300 MG
     Route: 048
     Dates: start: 20050531
  3. SEROQUEL [Suspect]
     Indication: ANXIETY
     Dosage: 100 TO 300 MG
     Route: 048
     Dates: start: 20050531
  4. SEROQUEL [Suspect]
     Indication: AFFECTIVE DISORDER
     Dosage: 100 TO 300 MG
     Route: 048
     Dates: start: 20050531
  5. SEROQUEL [Suspect]
     Dosage: 25-800 MG
     Route: 048
     Dates: start: 20051208
  6. SEROQUEL [Suspect]
     Dosage: 25-800 MG
     Route: 048
     Dates: start: 20051208
  7. SEROQUEL [Suspect]
     Dosage: 25-800 MG
     Route: 048
     Dates: start: 20051208
  8. SEROQUEL [Suspect]
     Dosage: 25-800 MG
     Route: 048
     Dates: start: 20051208

REACTIONS (11)
  - CHOLELITHIASIS [None]
  - HYPERCHOLESTEROLAEMIA [None]
  - HYPERLIPIDAEMIA [None]
  - ARTHROPATHY [None]
  - BLOOD CHOLESTEROL INCREASED [None]
  - HYPERTENSION [None]
  - BLOOD TRIGLYCERIDES INCREASED [None]
  - MALAISE [None]
  - TYPE 2 DIABETES MELLITUS [None]
  - DIABETIC COMPLICATION [None]
  - OBESITY [None]
